FAERS Safety Report 4297473-4 (Version None)
Quarter: 2004Q1

REPORT INFORMATION
  Report Type: 
  Country: None (occurrence: None)
  Receive Date: 20040213
  Receipt Date: 20040209
  Transmission Date: 20041129
  Serious: Yes (Hospitalization)
  Sender: FDA-Public Use
  Company Number: 2004AP00683

PATIENT
  Age: 8 Month
  Sex: Male

DRUGS (1)
  1. PULMICORT [Suspect]
     Indication: ASTHMA
     Dosage: 0.25 MG BID IH
     Route: 055

REACTIONS (6)
  - ADENOVIRUS INFECTION [None]
  - BACTERIAL INFECTION [None]
  - CHROMOSOMAL MUTATION [None]
  - COMBINED IMMUNODEFICIENCY [None]
  - PNEUMONIA [None]
  - PULMONARY HAEMORRHAGE [None]
